FAERS Safety Report 17198525 (Version 1)
Quarter: 2019Q4

REPORT INFORMATION
  Report Type: Spontaneous
  Country: US (occurrence: US)
  Receive Date: 20191203
  Receipt Date: 20191203
  Transmission Date: 20200122
  Serious: No
  Sender: FDA-Public Use
  Company Number: None

PATIENT
  Age: 58 Year
  Sex: Female
  Weight: 73.03 kg

DRUGS (4)
  1. REPATHA [Suspect]
     Active Substance: EVOLOCUMAB
     Indication: DIABETES MELLITUS
     Route: 058
     Dates: start: 201702
  2. REPATHA [Suspect]
     Active Substance: EVOLOCUMAB
     Indication: HYPERLIPIDAEMIA
     Route: 058
     Dates: start: 201702
  3. REPATHA [Suspect]
     Active Substance: EVOLOCUMAB
     Indication: PERIPHERAL VASCULAR DISORDER
     Route: 058
     Dates: start: 201702
  4. REPATHA [Suspect]
     Active Substance: EVOLOCUMAB
     Indication: FAMILIAL RISK FACTOR
     Route: 058
     Dates: start: 201702

REACTIONS (5)
  - Head injury [None]
  - Urinary tract infection [None]
  - Fall [None]
  - Kidney infection [None]
  - Sepsis [None]
